FAERS Safety Report 12717467 (Version 1)
Quarter: 2016Q3

REPORT INFORMATION
  Report Type: Spontaneous
  Country: GB (occurrence: GB)
  Receive Date: 20160906
  Receipt Date: 20160906
  Transmission Date: 20161109
  Serious: Yes (Other)
  Sender: FDA-Public Use
  Company Number: GB-SUN PHARMACEUTICAL INDUSTRIES LTD-2016RR-123035

PATIENT
  Age: 57 Year
  Sex: Female
  Weight: 88.9 kg

DRUGS (2)
  1. TRAMADOL. [Suspect]
     Active Substance: TRAMADOL
     Indication: SCIATICA
     Dosage: 50 MG, UNK
     Route: 048
     Dates: start: 20160814, end: 20160815
  2. PARACETAMOL [Concomitant]
     Active Substance: ACETAMINOPHEN
     Indication: PRODUCT USED FOR UNKNOWN INDICATION
     Dosage: 2 DF, UNK
     Route: 065
     Dates: start: 20160815

REACTIONS (4)
  - Dizziness [Recovering/Resolving]
  - Hyperhidrosis [Unknown]
  - Disturbance in attention [Unknown]
  - Haematemesis [Recovering/Resolving]

NARRATIVE: CASE EVENT DATE: 20160814
